FAERS Safety Report 14911344 (Version 3)
Quarter: 2018Q3

REPORT INFORMATION
  Report Type: Report from Study
  Country: ZA (occurrence: ZA)
  Receive Date: 20180518
  Receipt Date: 20180822
  Transmission Date: 20181010
  Serious: Yes (Other)
  Sender: FDA-Public Use
  Company Number: ZA-CIPLA (EU) LIMITED-2018ZA17895

PATIENT

DRUGS (1)
  1. EFAVIRENZ. [Suspect]
     Active Substance: EFAVIRENZ
     Indication: PERINATAL HIV INFECTION
     Dosage: UNK
     Route: 065

REACTIONS (4)
  - Postictal state [Unknown]
  - Antiviral drug level above therapeutic [Unknown]
  - Generalised tonic-clonic seizure [Recovered/Resolved]
  - Urinary incontinence [Unknown]
